FAERS Safety Report 6689055-1 (Version None)
Quarter: 2010Q2

REPORT INFORMATION
  Report Type: 
  Country: None (occurrence: None)
  Receive Date: 20100420
  Receipt Date: 20100415
  Transmission Date: 20101027
  Serious: Yes (Hospitalization)
  Sender: FDA-Public Use
  Company Number: FR-WYE-G05962710

PATIENT
  Age: 67 Year
  Sex: Male

DRUGS (1)
  1. TAZOCILLINE [Suspect]
     Indication: ABDOMINAL INFECTION
     Route: 042
     Dates: start: 20100309, end: 20100321

REACTIONS (6)
  - BURNING SENSATION [None]
  - ERYTHEMA [None]
  - HYPERSENSITIVITY [None]
  - HYPOTENSION [None]
  - MALAISE [None]
  - PAIN [None]
